FAERS Safety Report 8879153 (Version 1)
Quarter: 2012Q4

REPORT INFORMATION
  Report Type: Spontaneous
  Country: US (occurrence: None)
  Receive Date: 20121031
  Receipt Date: 20121031
  Transmission Date: 20130627
  Serious: Yes (Other)
  Sender: FDA-Public Use
  Company Number: None

PATIENT
  Sex: Male

DRUGS (1)
  1. TYSABRI [Suspect]
     Dosage: 300MG Q 4 WEEKS IV
     Route: 042
     Dates: start: 201206

REACTIONS (1)
  - Unevaluable event [None]
